FAERS Safety Report 17499149 (Version 3)
Quarter: 2020Q1

REPORT INFORMATION
  Report Type: Spontaneous
  Country: IN (occurrence: IN)
  Receive Date: 20200304
  Receipt Date: 20200312
  Transmission Date: 20200409
  Serious: Yes (Death, Hospitalization)
  Sender: FDA-Public Use
  Company Number: IN-JNJFOC-20200239138

PATIENT
  Age: 40 Year
  Sex: Male
  Weight: 51.6 kg

DRUGS (15)
  1. MOXIFLOXACIN. [Suspect]
     Active Substance: MOXIFLOXACIN
     Indication: TUBERCULOSIS
     Route: 065
     Dates: start: 20200213
  2. INDACATEROL [Concomitant]
     Active Substance: INDACATEROL
     Indication: DYSPNOEA
     Route: 065
     Dates: start: 20190822
  3. IMIPENEM [Suspect]
     Active Substance: IMIPENEM
     Indication: TUBERCULOSIS
     Route: 065
     Dates: start: 20200213
  4. GLYCOPYRONIUM [Concomitant]
     Active Substance: GLYCOPYRRONIUM
     Indication: DYSPNOEA
     Route: 065
     Dates: start: 20190822
  5. BEDAQUILINE [Suspect]
     Active Substance: BEDAQUILINE
     Route: 048
  6. LINEZOLID. [Suspect]
     Active Substance: LINEZOLID
     Indication: TUBERCULOSIS
     Route: 065
     Dates: start: 20200213
  7. METOCLOPRAMIDE. [Concomitant]
     Active Substance: METOCLOPRAMIDE
     Indication: ANTIEMETIC SUPPORTIVE CARE
     Route: 065
     Dates: start: 20190822
  8. AMOXICILLIN TRIHYDRATE [Suspect]
     Active Substance: AMOXICILLIN
     Indication: TUBERCULOSIS
     Route: 065
     Dates: start: 20200213
  9. PYRIDOXINE [Concomitant]
     Active Substance: PYRIDOXINE
     Indication: PROPHYLAXIS
     Route: 065
     Dates: start: 20190822
  10. ONDASETRON                         /00955301/ [Concomitant]
     Active Substance: ONDANSETRON
     Indication: VOMITING
     Route: 065
     Dates: start: 20190822
  11. DELAMANID [Suspect]
     Active Substance: DELAMANID
     Indication: TUBERCULOSIS
     Route: 065
     Dates: start: 20200213
  12. CLOFAZIMINE [Suspect]
     Active Substance: CLOFAZIMINE
     Indication: TUBERCULOSIS
     Route: 065
     Dates: start: 20200213
  13. INSULIN [Concomitant]
     Active Substance: INSULIN NOS
     Indication: DIABETES MELLITUS
     Route: 065
     Dates: start: 20200213
  14. BEDAQUILINE [Suspect]
     Active Substance: BEDAQUILINE
     Indication: TUBERCULOSIS
     Route: 048
     Dates: start: 20200213
  15. OMEPRAZOLE. [Concomitant]
     Active Substance: OMEPRAZOLE
     Indication: ANTACID THERAPY
     Route: 065
     Dates: start: 20190822

REACTIONS (2)
  - Pneumothorax [Fatal]
  - Bronchopleural fistula [Fatal]

NARRATIVE: CASE EVENT DATE: 20200220
